FAERS Safety Report 11777085 (Version 1)
Quarter: 2015Q4

REPORT INFORMATION
  Report Type: Spontaneous
  Country: US (occurrence: US)
  Receive Date: 20151125
  Receipt Date: 20151125
  Transmission Date: 20160304
  Serious: No
  Sender: FDA-Public Use
  Company Number: US-TEVA-537174USA

PATIENT
  Sex: Female

DRUGS (1)
  1. AMIODARONE [Suspect]
     Active Substance: AMIODARONE
     Indication: VENTRICULAR ARRHYTHMIA
     Route: 065

REACTIONS (4)
  - Constipation [Unknown]
  - Alopecia [Unknown]
  - Muscular weakness [Unknown]
  - Thyroid disorder [Unknown]
